FAERS Safety Report 4545873-7 (Version None)
Quarter: 2005Q1

REPORT INFORMATION
  Report Type: 
  Country: None (occurrence: None)
  Receive Date: 20050103
  Receipt Date: 20041223
  Transmission Date: 20050727
  Serious: Yes (Other)
  Sender: FDA-Public Use
  Company Number: 2004112542

PATIENT
  Sex: Male
  Weight: 89.3586 kg

DRUGS (7)
  1. VIAGRA [Suspect]
     Indication: ERECTILE DYSFUNCTION
     Dosage: 100 MG (100 MG, AS NECESSARY), ORAL
     Route: 048
  2. ATORVASTATIN                       (ATORVASTATIN) [Concomitant]
  3. INSULIN [Concomitant]
  4. INDOMETHACIN [Concomitant]
  5. ASPIRIN [Concomitant]
  6. FLUNISOLIDE                    (FLUNISOLIDE) [Concomitant]
  7. IPRATROPIUM BROMIDE [Concomitant]

REACTIONS (6)
  - ARTHRALGIA [None]
  - ARTHROPATHY [None]
  - BURSITIS [None]
  - DRUG INEFFECTIVE [None]
  - MENISCUS LESION [None]
  - THERAPEUTIC RESPONSE DECREASED [None]
